FAERS Safety Report 4470458-0 (Version None)
Quarter: 2004Q4

REPORT INFORMATION
  Report Type: 
  Country: None (occurrence: None)
  Receive Date: 20041005
  Receipt Date: 20041005
  Transmission Date: 20050328
  Serious: Yes (Hospitalization)
  Sender: FDA-Public Use
  Company Number: None

PATIENT
  Age: 83 Year
  Sex: Female
  Weight: 63.5036 kg

DRUGS (4)
  1. RITUXAN [Suspect]
     Indication: LYMPHOMA
     Dosage: 610 MG WEEKLY IV INTRUA (WKLY X 4)
     Dates: start: 20040924
  2. FLUDARA [Concomitant]
  3. TYLENOL [Concomitant]
  4. BENADRYL [Concomitant]

REACTIONS (6)
  - CHILLS [None]
  - FLUSHING [None]
  - NAUSEA [None]
  - PYREXIA [None]
  - TREMOR [None]
  - VOMITING [None]
